FAERS Safety Report 8596083-8 (Version None)
Quarter: 2012Q3

REPORT INFORMATION
  Report Type: 
  Country: None (occurrence: None)
  Receive Date: 20120807
  Receipt Date: 20120807
  Transmission Date: 20120928
  Serious: No
  Sender: FDA-Public Use
  Company Number: None

PATIENT
  Age: 75 Year
  Sex: Male
  Weight: 78.9259 kg

DRUGS (1)
  1. GALANTAMINE HYDROBROMIDE [Suspect]
     Dosage: 1 A DAY
     Dates: start: 20120413, end: 20120512

REACTIONS (3)
  - HEADACHE [None]
  - READING DISORDER [None]
  - ILL-DEFINED DISORDER [None]
